FAERS Safety Report 11303224 (Version 1)
Quarter: 2015Q3

REPORT INFORMATION
  Report Type: Report from Study
  Country: JP (occurrence: JP)
  Receive Date: 20150723
  Receipt Date: 20150723
  Transmission Date: 20151125
  Serious: Yes (Hospitalization)
  Sender: FDA-Public Use
  Company Number: PHJP2015JP011506

PATIENT
  Age: 69 Year
  Sex: Female
  Weight: 52 kg

DRUGS (16)
  1. BORTEZOMIB [Suspect]
     Active Substance: BORTEZOMIB
     Indication: PLASMA CELL MYELOMA
     Dosage: 1.3 MG/M2, QW2
     Route: 058
     Dates: start: 20150420
  2. DEXAMETHASONE. [Suspect]
     Active Substance: DEXAMETHASONE
     Dosage: 8 MG, QW2
     Route: 048
     Dates: start: 20150601, end: 20150623
  3. ACICLOVIR [Concomitant]
     Active Substance: ACYCLOVIR
     Indication: PROPHYLAXIS
     Dosage: 400 MG, QD
     Route: 048
     Dates: start: 20150420
  4. BACTRAMIN [Concomitant]
     Active Substance: SULFAMETHOXAZOLE\TRIMETHOPRIM
     Indication: PROPHYLAXIS
     Dosage: 1 DF, QD
     Route: 048
     Dates: start: 20150420
  5. SORENTMIN MERCK HOEI [Concomitant]
     Indication: INSOMNIA
     Dosage: 400 MG, QD
     Route: 048
     Dates: start: 20130808
  6. FARYDAK [Suspect]
     Active Substance: PANOBINOSTAT
     Indication: PLASMA CELL MYELOMA
     Dosage: 20 MG, UNK
     Route: 048
     Dates: start: 20150420
  7. FARYDAK [Suspect]
     Active Substance: PANOBINOSTAT
     Dosage: 15 MG, UNK
     Route: 048
     Dates: start: 20150601
  8. DEXAMETHASONE. [Suspect]
     Active Substance: DEXAMETHASONE
     Indication: PLASMA CELL MYELOMA
     Dosage: 20 MG, UNK
     Route: 048
     Dates: start: 20150420
  9. KETOPROFEN. [Concomitant]
     Active Substance: KETOPROFEN
     Indication: BACK PAIN
     Dosage: UNK
     Route: 062
     Dates: start: 20140403
  10. FLUCONAZOLE. [Concomitant]
     Active Substance: FLUCONAZOLE
     Indication: INFECTION PROPHYLAXIS
     Dosage: 100 MG, QD
     Route: 048
     Dates: start: 20150420
  11. BORTEZOMIB [Suspect]
     Active Substance: BORTEZOMIB
     Dosage: 1.3 MG/M2, QW2
     Route: 058
     Dates: start: 20150622
  12. PRAVASTATIN NA [Concomitant]
     Indication: HYPERLIPIDAEMIA
     Dosage: 10 MG, QD
     Route: 048
  13. MAGLAX [Concomitant]
     Active Substance: MAGNESIUM OXIDE
     Indication: CONSTIPATION
     Dosage: 660 MG, TID
     Route: 048
     Dates: start: 20150514
  14. FARYDAK [Suspect]
     Active Substance: PANOBINOSTAT
     Dosage: 10 MG, UNK
     Route: 048
     Dates: start: 20150622, end: 20150624
  15. AMITIZA [Concomitant]
     Active Substance: LUBIPROSTONE
     Indication: CONSTIPATION
     Dosage: 24 UG, QD
     Route: 048
     Dates: start: 20150430
  16. NEXIUM 1-2-3 [Concomitant]
     Active Substance: AMOXICILLIN\CLARITHROMYCIN\ESOMEPRAZOLE
     Indication: GASTRITIS PROPHYLAXIS
     Dosage: 20 MG, QD
     Route: 048
     Dates: start: 20130523

REACTIONS (1)
  - Pyelonephritis acute [Recovered/Resolved]

NARRATIVE: CASE EVENT DATE: 20150705
